FAERS Safety Report 18817531 (Version 3)
Quarter: 2021Q1

REPORT INFORMATION
  Report Type: Spontaneous
  Country: US (occurrence: US)
  Receive Date: 20210201
  Receipt Date: 20210308
  Transmission Date: 20210419
  Serious: No
  Sender: FDA-Public Use
  Company Number: US-BRISTOL-MYERS SQUIBB COMPANY-BMS-2021-008855

PATIENT
  Sex: Female

DRUGS (1)
  1. ELIQUIS [Suspect]
     Active Substance: APIXABAN
     Indication: PRODUCT USED FOR UNKNOWN INDICATION
     Dosage: 2.5 MILLIGRAM, BID (THOUGH SHE HAS THE 5 MG TABLET THE DOCTOR TOLD THE PATIENT TO HALVE THE TABLETS)
     Route: 048

REACTIONS (2)
  - Manufacturing product shipping issue [Unknown]
  - Wrong technique in product usage process [Unknown]
